FAERS Safety Report 15980848 (Version 2)
Quarter: 2019Q1

REPORT INFORMATION
  Report Type: Spontaneous
  Country: FR (occurrence: FR)
  Receive Date: 20190219
  Receipt Date: 20190226
  Transmission Date: 20190418
  Serious: Yes (Other)
  Sender: FDA-Public Use
  Company Number: FR-MYLANLABS-2019M1015315

PATIENT
  Age: 30 Year
  Sex: Male

DRUGS (4)
  1. LEPONEX [Suspect]
     Active Substance: CLOZAPINE
     Dosage: UNK
  2. LEPONEX [Suspect]
     Active Substance: CLOZAPINE
     Indication: SCHIZOPHRENIA
     Dosage: 350 MILLIGRAM
     Dates: start: 2014
  3. LEPONEX [Suspect]
     Active Substance: CLOZAPINE
     Dosage: UNK
  4. LEPONEX [Suspect]
     Active Substance: CLOZAPINE
     Dosage: 300 MILLIGRAM

REACTIONS (1)
  - Obsessive thoughts [Recovered/Resolved]
